FAERS Safety Report 19239769 (Version 1)
Quarter: 2021Q2

REPORT INFORMATION
  Report Type: Spontaneous
  Country: US (occurrence: US)
  Receive Date: 20210511
  Receipt Date: 20210511
  Transmission Date: 20210717
  Serious: Yes (Other)
  Sender: FDA-Public Use
  Company Number: US-ACCORD-220484

PATIENT
  Age: 54 Year
  Sex: Female

DRUGS (7)
  1. DOXORUBICIN [Suspect]
     Active Substance: DOXORUBICIN
     Indication: BREAST CANCER
     Dosage: Q 2 WEEKS X 8 CYCLES
     Dates: start: 20190829
  2. HYDROCORTISONE. [Concomitant]
     Active Substance: HYDROCORTISONE
     Dates: start: 20191010
  3. DOCETAXEL ACCORD [Suspect]
     Active Substance: DOCETAXEL
     Indication: CHEMOTHERAPY
     Dates: start: 20191031, end: 20191216
  4. LISINOPRIL. [Concomitant]
     Active Substance: LISINOPRIL
     Dosage: AS DIRECTED
     Route: 048
     Dates: start: 20190912
  5. PANTOPRAZOLE [Concomitant]
     Active Substance: PANTOPRAZOLE
     Dates: start: 20190829
  6. CYCLOPHOSPHAMIDE. [Suspect]
     Active Substance: CYCLOPHOSPHAMIDE
     Indication: BREAST CANCER
     Dosage: Q 2 WEEKS X 8 CYCLES
     Dates: start: 20190829
  7. LIDOCAINE/PRILOCAINE [Concomitant]
     Active Substance: LIDOCAINE\PRILOCAINE
     Dates: start: 20190912

REACTIONS (3)
  - Candida infection [Unknown]
  - Dacryostenosis acquired [Unknown]
  - Pancytopenia [Unknown]
